FAERS Safety Report 6968189-8 (Version None)
Quarter: 2010Q3

REPORT INFORMATION
  Report Type: 
  Country: None (occurrence: None)
  Receive Date: 20100907
  Receipt Date: 20100823
  Transmission Date: 20110219
  Serious: Yes (Hospitalization)
  Sender: FDA-Public Use
  Company Number: DE-BAYER-201036973GPV

PATIENT
  Age: 64 Year
  Sex: Female

DRUGS (9)
  1. SORAFENIB [Suspect]
     Indication: RENAL CELL CARCINOMA
     Dosage: TOTAL DAILY DOSE: 800 MG
     Route: 048
     Dates: start: 20100306, end: 20100701
  2. SORAFENIB [Suspect]
     Dosage: TOTAL DAILY DOSE: 400 MG
     Route: 048
     Dates: start: 20100701
  3. SUNITINIB MALATE [Suspect]
     Indication: RENAL CELL CARCINOMA
  4. REDUCTO SPEZIAL [Concomitant]
  5. LEVOTHYROXINE SODIUM [Concomitant]
  6. MOBLOC [Concomitant]
  7. CIPRALEX [Concomitant]
  8. ALLOPURINOL [Concomitant]
  9. PANTOPRAZOLE SODIUM [Concomitant]

REACTIONS (1)
  - PLEURAL EFFUSION [None]
